FAERS Safety Report 23020260 (Version 1)
Quarter: 2023Q4

REPORT INFORMATION
  Report Type: Spontaneous
  Country: US (occurrence: None)
  Receive Date: 20231002
  Receipt Date: 20231002
  Transmission Date: 20240110
  Serious: Yes (Death)
  Sender: FDA-Public Use
  Company Number: None

PATIENT
  Age: 47 Year
  Sex: Female
  Weight: 70 kg

DRUGS (9)
  1. TECARTUS [Suspect]
     Active Substance: BREXUCABTAGENE AUTOLEUCEL
     Indication: Acute lymphocytic leukaemia
     Dosage: FREQUENCY : ONCE;?
     Route: 042
     Dates: start: 20230619
  2. ACTEMRA [Concomitant]
     Active Substance: TOCILIZUMAB
     Dates: end: 20230628
  3. dexAMETHasone (Decadron) injection [Concomitant]
     Dates: end: 20230712
  4. anakinra (Kineret) [Concomitant]
     Dates: end: 20230712
  5. KEPPRA [Concomitant]
     Active Substance: LEVETIRACETAM
     Dates: start: 20230619, end: 20230712
  6. ZOSYN [Concomitant]
     Active Substance: PIPERACILLIN SODIUM\TAZOBACTAM SODIUM
     Dates: end: 20230705
  7. lacosamide (Vimpat) [Concomitant]
     Dates: end: 20230712
  8. VANCOMYCIN [Concomitant]
     Active Substance: VANCOMYCIN
     Dates: end: 20230713
  9. MEROPENEM [Concomitant]
     Active Substance: MEROPENEM
     Dates: end: 20230714

REACTIONS (3)
  - Immune effector cell-associated neurotoxicity syndrome [None]
  - Cytokine release syndrome [None]
  - Shock [None]

NARRATIVE: CASE EVENT DATE: 20230619
